FAERS Safety Report 23375582 (Version 1)
Quarter: 2024Q1

REPORT INFORMATION
  Report Type: Spontaneous
  Country: US (occurrence: US)
  Receive Date: 20240107
  Receipt Date: 20240107
  Transmission Date: 20240409
  Serious: No
  Sender: FDA-Public Use
  Company Number: US-009507513-2312USA009921

PATIENT
  Age: 6 Decade
  Sex: Female

DRUGS (3)
  1. KEYTRUDA [Suspect]
     Active Substance: PEMBROLIZUMAB
     Indication: Non-small cell lung cancer stage IV
     Dosage: FOUR CYCLES OF CARBOPLATIN, PEMETREXED, FOLLOWED BY MAINTENANCE PEMETREXED AND 2 YEARS OF PEMBROLIZU
     Route: 065
  2. PEMETREXED [Suspect]
     Active Substance: PEMETREXED
     Indication: Non-small cell lung cancer stage IV
     Dosage: FOUR CYCLES OF CARBOPLATIN, PEMETREXED, FOLLOWED BY MAINTENANCE PEMETREXED AND 2 YEARS OF PEMBROLIZU
     Route: 065
  3. CARBOPLATIN [Suspect]
     Active Substance: CARBOPLATIN
     Indication: Non-small cell lung cancer stage IV
     Dosage: FOUR CYCLES OF CARBOPLATIN, PEMETREXED
     Route: 065

REACTIONS (2)
  - Product use issue [Unknown]
  - Incorrect product administration duration [Unknown]
